FAERS Safety Report 12055325 (Version 4)
Quarter: 2016Q2

REPORT INFORMATION
  Report Type: Report from Study
  Country: VE (occurrence: VE)
  Receive Date: 20160209
  Receipt Date: 20160513
  Transmission Date: 20160815
  Serious: Yes (Other)
  Sender: FDA-Public Use
  Company Number: PHHY2016VE015134

PATIENT
  Sex: Female

DRUGS (6)
  1. BONDRONAT [Concomitant]
     Active Substance: IBANDRONIC ACID
     Indication: PRODUCT USED FOR UNKNOWN INDICATION
     Route: 065
  2. BENICAR [Concomitant]
     Active Substance: OLMESARTAN MEDOXOMIL
     Indication: BLOOD PRESSURE ABNORMAL
     Dosage: 20 MG
     Route: 065
  3. SANDOSTATIN LAR DEPOT [Suspect]
     Active Substance: OCTREOTIDE ACETATE
     Dosage: 40 MG, QMO (2 INJECTIONS OF 20 MG)
     Route: 065
     Dates: start: 20151215
  4. SANDOSTATIN LAR DEPOT [Suspect]
     Active Substance: OCTREOTIDE ACETATE
     Indication: PANCREATIC NEUROENDOCRINE TUMOUR METASTATIC
     Dosage: 20 MG QMO
     Route: 065
     Dates: start: 2009
  5. CONCOR [Concomitant]
     Active Substance: BISOPROLOL FUMARATE
     Indication: BLOOD PRESSURE ABNORMAL
     Route: 065
  6. SANDOSTATIN LAR DEPOT [Suspect]
     Active Substance: OCTREOTIDE ACETATE
     Dosage: 60 MG, QMO (ONLY 2 DOSES)
     Route: 030
     Dates: start: 20160315

REACTIONS (7)
  - Depressed mood [Unknown]
  - 5-hydroxyindolacetic acid increased [Unknown]
  - Hepatic lesion [Recovering/Resolving]
  - Malignant neoplasm progression [Unknown]
  - Malaise [Unknown]
  - Neoplasm [Unknown]
  - Blood chromogranin A increased [Unknown]
